FAERS Safety Report 20309432 (Version 1)
Quarter: 2022Q1

REPORT INFORMATION
  Report Type: Spontaneous
  Country: BR (occurrence: None)
  Receive Date: 20220107
  Receipt Date: 20220107
  Transmission Date: 20220423
  Serious: Yes (Other)
  Sender: FDA-Public Use
  Company Number: 2022A008249

PATIENT
  Sex: Female

DRUGS (5)
  1. TAGRISSO [Suspect]
     Active Substance: OSIMERTINIB
     Indication: Lung neoplasm malignant
     Dosage: ONCE A DAY
     Route: 048
     Dates: start: 2020
  2. ATACAND [Suspect]
     Active Substance: CANDESARTAN CILEXETIL
     Indication: Hypertension
     Dosage: 8.0MG UNKNOWN
     Route: 048
     Dates: start: 202109
  3. RISEDRONATE SODIUM [Concomitant]
     Active Substance: RISEDRONATE SODIUM
     Indication: Osteoporosis
     Dosage: 150.0MG UNKNOWN
     Route: 065
     Dates: start: 20211122
  4. VITAMINS [Concomitant]
     Active Substance: VITAMINS
     Indication: Anaemia
     Route: 065
  5. FOLIC ACID [Concomitant]
     Active Substance: FOLIC ACID
     Route: 065

REACTIONS (2)
  - Malignant neoplasm progression [Unknown]
  - Feeling abnormal [Unknown]

NARRATIVE: CASE EVENT DATE: 20210101
